FAERS Safety Report 15430602 (Version 1)
Quarter: 2018Q3

REPORT INFORMATION
  Report Type: Spontaneous
  Country: US (occurrence: US)
  Receive Date: 20180926
  Receipt Date: 20180926
  Transmission Date: 20181010
  Serious: Yes (Other)
  Sender: FDA-Public Use
  Company Number: US-JNJFOC-20180927696

PATIENT
  Age: 79 Year
  Sex: Female
  Weight: 75.75 kg

DRUGS (1)
  1. XARELTO [Suspect]
     Active Substance: RIVAROXABAN
     Indication: ARTERIAL OCCLUSIVE DISEASE
     Dosage: IN MORNING
     Route: 048
     Dates: start: 20180918

REACTIONS (4)
  - Dizziness [Not Recovered/Not Resolved]
  - Hot flush [Not Recovered/Not Resolved]
  - Memory impairment [Not Recovered/Not Resolved]
  - Depressed level of consciousness [Not Recovered/Not Resolved]

NARRATIVE: CASE EVENT DATE: 20180919
